FAERS Safety Report 19295691 (Version 3)
Quarter: 2021Q2

REPORT INFORMATION
  Report Type: Spontaneous
  Country: GB (occurrence: GB)
  Receive Date: 20210518
  Receipt Date: 20210518
  Transmission Date: 20210717
  Serious: Yes (Life-Threatening, Disabling)
  Sender: FDA-Public Use
  Company Number: GB-DEXPHARM-20210609

PATIENT
  Age: 27 Year
  Sex: Male
  Weight: 94 kg

DRUGS (2)
  1. VENLAFAXINE [Suspect]
     Active Substance: VENLAFAXINE HYDROCHLORIDE
     Indication: DEPRESSION
     Dosage: 75MG DAILY
     Dates: start: 20180408, end: 20180601
  2. CONCERTA [Interacting]
     Active Substance: METHYLPHENIDATE HYDROCHLORIDE
     Indication: ILL-DEFINED DISORDER

REACTIONS (2)
  - Drug interaction [Recovered/Resolved]
  - Suicidal behaviour [Recovered/Resolved]

NARRATIVE: CASE EVENT DATE: 20180421
